FAERS Safety Report 5446796-1 (Version None)
Quarter: 2007Q3

REPORT INFORMATION
  Report Type: 
  Country: None (occurrence: None)
  Receive Date: 20070907
  Receipt Date: 20070829
  Transmission Date: 20080115
  Serious: Yes (Other)
  Sender: FDA-Public Use
  Company Number: US-PFIZER INC-2007072293

PATIENT
  Sex: Female
  Weight: 86 kg

DRUGS (13)
  1. CELEBREX [Suspect]
     Indication: ARTHRITIS
  2. CHANTIX [Suspect]
     Indication: EX-SMOKER
  3. CARDIZEM [Concomitant]
  4. ALL OTHER THERAPEUTIC PRODUCTS [Concomitant]
  5. ZOLOFT [Concomitant]
  6. PREMARIN [Concomitant]
  7. HYDROCODONE BITARTRATE [Concomitant]
  8. ALBUTEROL [Concomitant]
  9. ADVAIR DISKUS 100/50 [Concomitant]
  10. FLONASE [Concomitant]
  11. ASPIRIN [Concomitant]
  12. OSCAL [Concomitant]
  13. LAXATIVES [Concomitant]

REACTIONS (2)
  - BACK PAIN [None]
  - VOMITING [None]
